FAERS Safety Report 15634811 (Version 1)
Quarter: 2018Q4

REPORT INFORMATION
  Report Type: Spontaneous
  Country: FI (occurrence: FI)
  Receive Date: 20181119
  Receipt Date: 20181119
  Transmission Date: 20190205
  Serious: Yes (Disabling)
  Sender: FDA-Public Use
  Company Number: FI-VALIDUS PHARMACEUTICALS LLC-FI-2018VAL000964

PATIENT
  Age: 12 Year
  Sex: Female

DRUGS (20)
  1. ACETAZOLAMIDE. [Suspect]
     Active Substance: ACETAZOLAMIDE
     Indication: MYOCLONIC EPILEPSY
     Dosage: UNK
  2. ETHOSUXIMIDE. [Suspect]
     Active Substance: ETHOSUXIMIDE
     Indication: MYOCLONIC EPILEPSY
     Dosage: UNK
  3. NITRAZEPAM [Suspect]
     Active Substance: NITRAZEPAM
     Indication: ATONIC SEIZURES
  4. NITRAZEPAM [Suspect]
     Active Substance: NITRAZEPAM
     Indication: MYOCLONIC EPILEPSY
     Dosage: UNK
  5. LEVETIRACETAM. [Suspect]
     Active Substance: LEVETIRACETAM
     Indication: ATONIC SEIZURES
  6. CARBAMAZEPINE. [Suspect]
     Active Substance: CARBAMAZEPINE
     Indication: ATONIC SEIZURES
  7. VIGABATRIN. [Suspect]
     Active Substance: VIGABATRIN
     Indication: ATONIC SEIZURES
  8. ETHOSUXIMIDE. [Suspect]
     Active Substance: ETHOSUXIMIDE
     Indication: ATONIC SEIZURES
  9. TOPIRAMATE. [Suspect]
     Active Substance: TOPIRAMATE
     Indication: MYOCLONIC EPILEPSY
     Dosage: UNK
  10. LAMOTRIGINE. [Suspect]
     Active Substance: LAMOTRIGINE
     Indication: MYOCLONIC EPILEPSY
     Dosage: UNK
  11. CLONAZEPAM. [Suspect]
     Active Substance: CLONAZEPAM
     Indication: ATONIC SEIZURES
  12. VALPROATE [Suspect]
     Active Substance: VALPROIC ACID
     Indication: MYOCLONIC EPILEPSY
     Dosage: UNK
  13. ACETAZOLAMIDE. [Suspect]
     Active Substance: ACETAZOLAMIDE
     Indication: ATONIC SEIZURES
  14. LAMOTRIGINE. [Suspect]
     Active Substance: LAMOTRIGINE
     Indication: ATONIC SEIZURES
  15. CARBAMAZEPINE. [Suspect]
     Active Substance: CARBAMAZEPINE
     Indication: MYOCLONIC EPILEPSY
     Dosage: UNK
  16. CLONAZEPAM. [Suspect]
     Active Substance: CLONAZEPAM
     Indication: MYOCLONIC EPILEPSY
     Dosage: UNK
  17. LEVETIRACETAM. [Suspect]
     Active Substance: LEVETIRACETAM
     Indication: MYOCLONIC EPILEPSY
     Dosage: UNK
  18. TOPIRAMATE. [Suspect]
     Active Substance: TOPIRAMATE
     Indication: ATONIC SEIZURES
  19. VALPROATE [Suspect]
     Active Substance: VALPROIC ACID
     Indication: ATONIC SEIZURES
  20. VIGABATRIN. [Suspect]
     Active Substance: VIGABATRIN
     Indication: MYOCLONIC EPILEPSY
     Dosage: UNK

REACTIONS (1)
  - Intellectual disability [Unknown]
